FAERS Safety Report 7126186-6 (Version None)
Quarter: 2010Q4

REPORT INFORMATION
  Report Type: 
  Country: None (occurrence: None)
  Receive Date: 20101129
  Receipt Date: 20101116
  Transmission Date: 20110411
  Serious: Yes (Other)
  Sender: FDA-Public Use
  Company Number: US-JNJFOC-20101107126

PATIENT
  Age: 43 Year
  Sex: Male
  Weight: 136.08 kg

DRUGS (4)
  1. RISPERIDONE [Suspect]
     Indication: ILL-DEFINED DISORDER
     Route: 065
  2. TOPIRAMATE [Suspect]
     Indication: ILL-DEFINED DISORDER
     Route: 048
  3. CHLORPROMAZINE [Concomitant]
     Route: 065
  4. VALPROIC ACID [Concomitant]
     Indication: CONVULSION
     Route: 065

REACTIONS (1)
  - HALLUCINATION, AUDITORY [None]
